FAERS Safety Report 8285397-7 (Version None)
Quarter: 2012Q2

REPORT INFORMATION
  Report Type: 
  Country: None (occurrence: None)
  Receive Date: 20120413
  Receipt Date: 20110802
  Transmission Date: 20120825
  Serious: No
  Sender: FDA-Public Use
  Company Number: US-ASTRAZENECA-2011SE46109

PATIENT
  Age: 57 Year
  Sex: Male

DRUGS (2)
  1. NEXIUM [Suspect]
     Indication: GASTROOESOPHAGEAL REFLUX DISEASE
     Route: 048
     Dates: start: 20080101, end: 20110727
  2. OMEPRAZOLE [Suspect]
     Route: 048

REACTIONS (4)
  - DYSGEUSIA [None]
  - DISCOMFORT [None]
  - DRUG DOSE OMISSION [None]
  - HYPERCHLORHYDRIA [None]
